FAERS Safety Report 21824229 (Version 1)
Quarter: 2023Q1

REPORT INFORMATION
  Report Type: Spontaneous
  Country: US (occurrence: None)
  Receive Date: 20230104
  Receipt Date: 20230104
  Transmission Date: 20230418
  Serious: Yes (Other)
  Sender: FDA-Public Use
  Company Number: None

PATIENT
  Age: 46 Year
  Sex: Female

DRUGS (2)
  1. STELARA [Suspect]
     Active Substance: USTEKINUMAB
     Indication: Crohn^s disease
     Dosage: FREQUENCY : MONTHLY;?
     Route: 058
     Dates: start: 202101
  2. STELARA [Suspect]
     Active Substance: USTEKINUMAB
     Indication: Dermatitis atopic

REACTIONS (4)
  - Arthralgia [None]
  - Pain [None]
  - Dizziness [None]
  - Heart rate increased [None]
